FAERS Safety Report 9994953 (Version 1)
Quarter: 2014Q1

REPORT INFORMATION
  Report Type: Spontaneous
  Country: MX (occurrence: None)
  Receive Date: 20140306
  Receipt Date: 20140306
  Transmission Date: 20141002
  Serious: Yes (Hospitalization)
  Sender: FDA-Public Use
  Company Number: BD-2014-0014

PATIENT
  Sex: 0

DRUGS (1)
  1. METOCLOPRAMIDE (METOCLOPRAMIDE) INJECTION, 5MG/ML [Suspect]
     Indication: DIARRHOEA

REACTIONS (2)
  - Toxicity to various agents [None]
  - Overdose [None]
